FAERS Safety Report 8261056-1 (Version None)
Quarter: 2012Q2

REPORT INFORMATION
  Report Type: 
  Country: None (occurrence: None)
  Receive Date: 20120405
  Receipt Date: 20120328
  Transmission Date: 20120825
  Serious: Yes (Hospitalization, Other)
  Sender: FDA-Public Use
  Company Number: PHEH2012US004878

PATIENT
  Sex: Female

DRUGS (8)
  1. TEMAZEPAM [Concomitant]
  2. AMOXICILLIN [Concomitant]
  3. IRON [Concomitant]
  4. ATENOLOL [Concomitant]
  5. NITROGLYCERIN [Concomitant]
  6. POTASSIUM CHLORIDE [Concomitant]
  7. CALCIUM CARBONATE [Concomitant]
  8. DIOVAN [Suspect]
     Dosage: 80 MG, DAILY
     Dates: start: 19990101

REACTIONS (1)
  - CARDIAC ARREST [None]
